FAERS Safety Report 8900397 (Version 1)
Quarter: 2012Q4

REPORT INFORMATION
  Report Type: 
  Country: US (occurrence: US)
  Receive Date: 20121108
  Receipt Date: 20121108
  Transmission Date: 20130627
  Serious: No
  Sender: FDA-Public Use
  Company Number: US-AMGEN-USASP2012037881

PATIENT
  Age: 66 Year
  Sex: Female
  Weight: 99.77 kg

DRUGS (17)
  1. ENBREL [Suspect]
     Dosage: 25 mg, 2 times/wk
     Route: 058
  2. CALTRATE +D                        /01204201/ [Concomitant]
     Dosage: UNK
  3. LISINOPRIL [Concomitant]
     Dosage: 40 mg, UNK
  4. HUMALOG [Concomitant]
     Dosage: UNK
  5. CELEBREX [Concomitant]
     Dosage: 100 mg, UNK
  6. LASIX                              /00032601/ [Concomitant]
     Dosage: 20 mg, UNK
  7. LOPID [Concomitant]
     Dosage: 20 mg, UNK
  8. IMDUR [Concomitant]
     Dosage: 120 mg, UNK
  9. LANTUS [Concomitant]
     Dosage: UNK
  10. METOPROLOL TARTRATE [Concomitant]
     Dosage: 100 mg, UNK
  11. VENTOLIN HFA [Concomitant]
     Dosage: UNK
  12. GLIPIZIDE ER [Concomitant]
     Dosage: 2.5 mg, UNK
  13. POTASSIUM [Concomitant]
     Dosage: 99 mg, UNK
  14. ASPIRIN (E.C.) [Concomitant]
     Dosage: 325 mg, UNK
  15. HYDRALAZINE [Concomitant]
     Dosage: 100 mg, UNK
  16. LORATADINE [Concomitant]
     Dosage: UNK
  17. QVAR [Concomitant]
     Dosage: 40 mug, UNK

REACTIONS (1)
  - Injection site pain [Unknown]
